FAERS Safety Report 4974975-6 (Version None)
Quarter: 2006Q2

REPORT INFORMATION
  Report Type: 
  Country: None (occurrence: None)
  Receive Date: 20060414
  Receipt Date: 20060414
  Transmission Date: 20061013
  Serious: Yes (Other)
  Sender: FDA-Public Use
  Company Number: None

PATIENT
  Sex: Male
  Weight: 95.9 kg

DRUGS (2)
  1. GENTAMICIN [Suspect]
     Indication: PYREXIA
     Dosage: 220 MG QD IV
     Route: 042
     Dates: start: 20051106, end: 20051108
  2. GLEEVEC [Suspect]
     Indication: ACUTE MYELOID LEUKAEMIA RECURRENT
     Dosage: 300 MG QD PO
     Route: 048
     Dates: start: 20051027, end: 20060117

REACTIONS (2)
  - BLOOD CREATININE INCREASED [None]
  - PYREXIA [None]
